FAERS Safety Report 4917168-0 (Version None)
Quarter: 2006Q1

REPORT INFORMATION
  Report Type: 
  Country: None (occurrence: None)
  Receive Date: 20060221
  Receipt Date: 20060209
  Transmission Date: 20060701
  Serious: Yes (Hospitalization, Other)
  Sender: FDA-Public Use
  Company Number: NZ-AVENTIS-200611262GDDC

PATIENT
  Age: 61 Year
  Sex: Male

DRUGS (7)
  1. ARAVA [Suspect]
     Indication: RHEUMATOID ARTHRITIS
     Route: 048
     Dates: start: 20020801
  2. METHOTREXATE [Concomitant]
     Dosage: DOSE: UNK
  3. VERAPAMIL [Concomitant]
     Dosage: DOSE: UNK
  4. SOMAC [Concomitant]
     Dosage: DOSE: UNK
  5. VENTOLIN [Concomitant]
     Dosage: DOSE: UNK
  6. ACETAMINOPHEN [Concomitant]
     Dosage: DOSE: UNK
  7. COD LIVER OIL [Concomitant]
     Dosage: DOSE: UNK

REACTIONS (4)
  - DEHYDRATION [None]
  - FLUID INTAKE REDUCED [None]
  - MOUTH ULCERATION [None]
  - ORAL INTAKE REDUCED [None]
